FAERS Safety Report 6436075-8 (Version None)
Quarter: 2009Q4

REPORT INFORMATION
  Report Type: 
  Country: None (occurrence: None)
  Receive Date: 20091111
  Receipt Date: 20091105
  Transmission Date: 20100525
  Serious: Yes (Hospitalization)
  Sender: FDA-Public Use
  Company Number: US-ELI_LILLY_AND_COMPANY-US200909002526

PATIENT
  Sex: Male

DRUGS (24)
  1. BYETTA [Suspect]
     Indication: TYPE 1 DIABETES MELLITUS
     Dosage: 5 UG, 2/D
     Route: 058
  2. LIPITOR [Concomitant]
     Dosage: 80 MG, DAILY (1/D)
  3. TRICOR [Concomitant]
     Dosage: 145 MG, DAILY (1/D)
  4. NEURONTIN [Concomitant]
     Dosage: 300 MG, 3/D
  5. POTASSIUM CHLORIDE [Concomitant]
     Dosage: 10 MEQ, DAILY (1/D)
  6. FLOMAX [Concomitant]
     Dosage: 0.4 MG, DAILY (1/D)
  7. AVAPRO [Concomitant]
     Dosage: 300 MG, DAILY (1/D)
  8. SENOKOT [Concomitant]
     Dosage: UNK, 2/D
  9. CHROMAGEN /00555001/ [Concomitant]
     Dosage: UNK, DAILY (1/D)
  10. ACTOS /SCH/ [Concomitant]
     Dosage: 15 MG, DAILY (1/D)
  11. LASIX [Concomitant]
     Dosage: 20 MG, 3/W
     Route: 048
  12. LASIX [Concomitant]
     Dosage: 40 MG, 4/W
     Route: 048
  13. NOVOLOG [Concomitant]
     Dosage: UNK, AS NEEDED
     Dates: end: 20090911
  14. LEVEMIR [Concomitant]
     Dosage: 90 U, EACH EVENING
     Route: 058
     Dates: end: 20090911
  15. LEVEMIR [Concomitant]
     Dosage: 80 U, EACH EVENING
     Route: 058
     Dates: start: 20090912, end: 20090912
  16. LEVEMIR [Concomitant]
     Dosage: 70 U, EACH EVENING
     Route: 058
     Dates: start: 20090913, end: 20090913
  17. LEVEMIR [Concomitant]
     Dosage: 60 U, EACH EVENING
     Route: 058
     Dates: start: 20090914, end: 20090916
  18. LEVEMIR [Concomitant]
     Dosage: 70 U, EACH EVENING
     Route: 058
     Dates: start: 20090917, end: 20090918
  19. LEVEMIR [Concomitant]
     Dosage: 75 U, EACH EVENING
     Route: 058
     Dates: start: 20090919
  20. NOVOLIN R [Concomitant]
     Dosage: 50 U, DAILY (1/D)
     Dates: end: 20090909
  21. NOVOLIN R [Concomitant]
     Dosage: 30 U, DAILY (1/D)
     Dates: start: 20090910, end: 20090911
  22. NOVOLIN R [Concomitant]
     Dosage: 15 U, DAILY (1/D)
     Dates: start: 20090912, end: 20090913
  23. NOVOLIN R [Concomitant]
     Dosage: 10 U, DAILY (1/D)
     Dates: start: 20090914, end: 20090916
  24. NOVOLIN R [Concomitant]
     Dosage: 30 U, DAILY (1/D)
     Dates: start: 20090917

REACTIONS (14)
  - BLOOD GLUCOSE INCREASED [None]
  - CANDIDIASIS [None]
  - CONSTIPATION [None]
  - DIABETIC NEUROPATHY [None]
  - HYPERCHOLESTEROLAEMIA [None]
  - HYPERTENSION [None]
  - HYPOGLYCAEMIA [None]
  - IRON DEFICIENCY ANAEMIA [None]
  - OBESITY [None]
  - OFF LABEL USE [None]
  - OSTEOARTHRITIS [None]
  - RASH [None]
  - SLEEP APNOEA SYNDROME [None]
  - URINARY TRACT INFECTION [None]
